FAERS Safety Report 7604229-0 (Version None)
Quarter: 2011Q3

REPORT INFORMATION
  Report Type: 
  Country: None (occurrence: None)
  Receive Date: 20110712
  Receipt Date: 20110601
  Transmission Date: 20111222
  Serious: Yes (Death)
  Sender: FDA-Public Use
  Company Number: CH-GLAXOSMITHKLINE-B0724054A

PATIENT
  Age: 20 Year
  Sex: Female

DRUGS (3)
  1. LAMICTAL [Suspect]
     Indication: PETIT MAL EPILEPSY
     Route: 048
  2. NORFLOXACIN [Concomitant]
     Route: 048
     Dates: end: 20110309
  3. CYPROTERONE ACETATE + ETHINYLESTRADIOL [Suspect]
     Indication: CONTRACEPTION
     Route: 048
     Dates: start: 20110304, end: 20110312

REACTIONS (2)
  - DEATH [None]
  - CONVULSION [None]
